FAERS Safety Report 8090267-3 (Version None)
Quarter: 2012Q1

REPORT INFORMATION
  Report Type: 
  Country: None (occurrence: None)
  Receive Date: 20120129
  Receipt Date: 20111111
  Transmission Date: 20120608
  Serious: No
  Sender: FDA-Public Use
  Company Number: US-ABBOTT-11P-163-0872485-00

PATIENT
  Sex: Female

DRUGS (15)
  1. SULFASALAZINE [Concomitant]
     Indication: PRODUCT USED FOR UNKNOWN INDICATION
  2. FOLIC ACID [Concomitant]
     Indication: PRODUCT USED FOR UNKNOWN INDICATION
  3. LIDOCAINE [Concomitant]
     Indication: BLADDER DISORDER
     Dosage: INSTILLED THREE TIMES DAILY VIA CATHETER
  4. SYNTHROID [Concomitant]
     Indication: HYPOTHYROIDISM
  5. HUMIRA [Suspect]
     Indication: INFLAMMATORY BOWEL DISEASE
     Dosage: LOADING DOSE FOUR PENS
     Route: 058
     Dates: start: 20111103
  6. ELMIRON [Concomitant]
     Indication: BLADDER DISORDER
  7. PHENAZOPYRIDINE HCL TAB [Concomitant]
     Indication: BLADDER DISORDER
  8. HEPARIN [Concomitant]
     Indication: PRODUCT USED FOR UNKNOWN INDICATION
  9. ACETAMINOPHEN [Concomitant]
     Indication: PRODUCT USED FOR UNKNOWN INDICATION
  10. HUMIRA [Suspect]
     Dosage: TWO PENS
     Route: 058
  11. LIOTHYRONINE SODIUM [Concomitant]
     Indication: HYPOTHYROIDISM
  12. TRAMADOL HCL [Concomitant]
     Indication: PAIN
  13. AMITRIPTYLINE HCL [Concomitant]
     Indication: BLADDER DISORDER
  14. SODIUM BICARBONATE [Concomitant]
     Indication: PRODUCT USED FOR UNKNOWN INDICATION
  15. HYDROXYZINE [Concomitant]
     Indication: BLADDER DISORDER

REACTIONS (6)
  - NAUSEA [None]
  - DIARRHOEA [None]
  - HEADACHE [None]
  - PAIN [None]
  - INFLUENZA LIKE ILLNESS [None]
  - BONE PAIN [None]
